FAERS Safety Report 8554741-5 (Version None)
Quarter: 2012Q3

REPORT INFORMATION
  Report Type: 
  Country: None (occurrence: None)
  Receive Date: 20120731
  Receipt Date: 20120724
  Transmission Date: 20120928
  Serious: Yes (Death)
  Sender: FDA-Public Use
  Company Number: JP-JNJFOC-20120405503

PATIENT
  Age: 84 Year
  Sex: Female
  Weight: 45 kg

DRUGS (12)
  1. TENORMIN [Concomitant]
     Indication: ANGINA PECTORIS
     Route: 048
  2. LASIX [Concomitant]
     Indication: HYPERTENSION
     Route: 048
  3. LENDORMIN [Concomitant]
     Indication: INSOMNIA
     Route: 048
  4. ADALAT CC [Concomitant]
     Indication: HYPERTENSION
     Route: 048
  5. OLMESARTAN MEDOXOMIL [Concomitant]
     Indication: HYPERTENSION
     Route: 048
  6. TALION [Concomitant]
     Indication: SEASONAL ALLERGY
     Route: 048
  7. ALDOMET [Concomitant]
     Indication: HYPERTENSION
     Route: 048
  8. CELEBREX [Concomitant]
     Indication: RHEUMATOID ARTHRITIS
     Route: 048
     Dates: end: 20120403
  9. SIMPONI [Suspect]
     Indication: RHEUMATOID ARTHRITIS
     Route: 058
     Dates: start: 20120307, end: 20120326
  10. NESINA [Concomitant]
     Indication: DIABETES MELLITUS
     Route: 048
  11. ASPIRIN [Concomitant]
     Indication: ANGINA PECTORIS
     Route: 048
  12. LANSOPRAZOLE [Concomitant]
     Indication: GASTRIC ULCER
     Route: 048

REACTIONS (1)
  - LEUKAEMIA [None]
